FAERS Safety Report 11910413 (Version 2)
Quarter: 2016Q4

REPORT INFORMATION
  Report Type: Report from Study
  Country: US (occurrence: US)
  Receive Date: 20160112
  Receipt Date: 20161206
  Transmission Date: 20170206
  Serious: Yes (Other)
  Sender: FDA-Public Use
  Company Number: US-AMGEN-USASL2016001575

PATIENT
  Age: 75 Year
  Sex: Female

DRUGS (1)
  1. PROLIA [Suspect]
     Active Substance: DENOSUMAB
     Indication: OSTEOPOROSIS
     Dosage: UNK
     Route: 065

REACTIONS (7)
  - Exposed bone in jaw [Not Recovered/Not Resolved]
  - Rash [Recovered/Resolved]
  - Adverse drug reaction [Unknown]
  - Osteomyelitis [Unknown]
  - Jaw disorder [Unknown]
  - Tooth extraction [Unknown]
  - Impaired healing [Unknown]
